FAERS Safety Report 12075912 (Version 1)
Quarter: 2016Q1

REPORT INFORMATION
  Report Type: Spontaneous
  Country: CA (occurrence: CA)
  Receive Date: 20160214
  Receipt Date: 20160214
  Transmission Date: 20160526
  Serious: Yes (Hospitalization, Other)
  Sender: FDA-Public Use
  Company Number: CA-ROCHE-1709588

PATIENT
  Sex: Female

DRUGS (7)
  1. HYDROMORPH [Concomitant]
     Active Substance: HYDROMORPHONE
  2. ACTEMRA [Suspect]
     Active Substance: TOCILIZUMAB
     Indication: RHEUMATOID ARTHRITIS
     Route: 065
  3. CIPRALEX [Concomitant]
     Active Substance: ESCITALOPRAM OXALATE
  4. PREDNISONE. [Concomitant]
     Active Substance: PREDNISONE
     Route: 048
  5. AMITRIPTYLINE [Concomitant]
     Active Substance: AMITRIPTYLINE
     Dosage: 2.5 MG ORALLY ON AM AND 2.5 MG ORALLY ON PM
     Route: 048
  6. CLONAZEPAM. [Concomitant]
     Active Substance: CLONAZEPAM
     Route: 048
  7. METHOTREXATE [Concomitant]
     Active Substance: METHOTREXATE
     Indication: RHEUMATOID ARTHRITIS
     Dosage: 2.5 MG 2 PILLS
     Route: 048

REACTIONS (4)
  - Arthropathy [Unknown]
  - Arthritis [Unknown]
  - Drug ineffective [Unknown]
  - Infection [Unknown]
